FAERS Safety Report 13901883 (Version 1)
Quarter: 2017Q3

REPORT INFORMATION
  Report Type: Spontaneous
  Country: US (occurrence: US)
  Receive Date: 20170824
  Receipt Date: 20170824
  Transmission Date: 20171127
  Serious: No
  Sender: FDA-Public Use
  Company Number: US-ROCHE-1100253

PATIENT
  Sex: Female

DRUGS (16)
  1. IXEMPRA [Suspect]
     Active Substance: IXABEPILONE
     Indication: BREAST CANCER METASTATIC
     Route: 065
     Dates: end: 201109
  2. CYCLOPHOSPHAMIDE. [Concomitant]
     Active Substance: CYCLOPHOSPHAMIDE
  3. CARBOPLATIN. [Concomitant]
     Active Substance: CARBOPLATIN
     Route: 065
     Dates: start: 201201, end: 201205
  4. TYKERB [Concomitant]
     Active Substance: LAPATINIB DITOSYLATE
     Dosage: RESTART
     Route: 065
     Dates: start: 2010, end: 201109
  5. HERCEPTIN [Suspect]
     Active Substance: TRASTUZUMAB
     Route: 065
     Dates: end: 201109
  6. HERCEPTIN [Suspect]
     Active Substance: TRASTUZUMAB
     Route: 065
     Dates: start: 201201, end: 201205
  7. ANTHRACYCLINE [Concomitant]
     Active Substance: UNSPECIFIED INGREDIENT
  8. TAMOXIFEN [Concomitant]
     Active Substance: TAMOXIFEN
  9. TAXOL [Concomitant]
     Active Substance: PACLITAXEL
  10. XELODA [Suspect]
     Active Substance: CAPECITABINE
     Indication: BREAST CANCER METASTATIC
     Route: 065
  11. TAXOTERE [Concomitant]
     Active Substance: DOCETAXEL
     Route: 065
     Dates: start: 201201, end: 201205
  12. TYKERB [Concomitant]
     Active Substance: LAPATINIB DITOSYLATE
     Route: 065
  13. HERCEPTIN [Suspect]
     Active Substance: TRASTUZUMAB
     Indication: BREAST CANCER METASTATIC
     Dosage: STARTED THREE YEAR AGO
     Route: 065
  14. XELODA [Suspect]
     Active Substance: CAPECITABINE
     Dosage: RESUMED THERAPY
     Route: 065
  15. TYKERB [Concomitant]
     Active Substance: LAPATINIB DITOSYLATE
     Dosage: RESUMED THERAPY
     Route: 065
  16. XELODA [Suspect]
     Active Substance: CAPECITABINE
     Route: 065
     Dates: start: 201006, end: 201012

REACTIONS (1)
  - Treatment failure [Unknown]
